FAERS Safety Report 9893560 (Version 2)
Quarter: 2014Q1

REPORT INFORMATION
  Report Type: Report from Study
  Country: US (occurrence: US)
  Receive Date: 20140213
  Receipt Date: 20140213
  Transmission Date: 20141002
  Serious: No
  Sender: FDA-Public Use
  Company Number: US-B.I. PHARMACEUTICALS,INC./RIDGEFIELD-2013-BI-32934BI

PATIENT
  Age: 84 Year
  Sex: Female

DRUGS (12)
  1. GILOTRIF [Suspect]
     Indication: NON-SMALL CELL LUNG CANCER
     Dosage: 40 MG
     Route: 048
     Dates: start: 20131007
  2. ZOMETA [Concomitant]
  3. SERTRALINE HCL [Concomitant]
     Dosage: 50 MG
  4. POTASSIUM [Concomitant]
     Dosage: 10 MEQ
  5. LISINOPRIL [Concomitant]
     Dosage: 30 MG
  6. METOPROLOL [Concomitant]
     Dosage: 150 MG
  7. METFORMIN [Concomitant]
     Dosage: 500 MG
  8. PLAVIX [Concomitant]
     Dosage: 75 MG
  9. GLIPIZIDE [Concomitant]
     Dosage: 10 MG
  10. NEXIUM [Concomitant]
     Dosage: 80 MG
  11. MULTIVITAMIN [Concomitant]
  12. CALCIUM D 500 [Concomitant]

REACTIONS (2)
  - Diarrhoea [Recovered/Resolved]
  - Dry mouth [Not Recovered/Not Resolved]
